FAERS Safety Report 5263391-8 (Version None)
Quarter: 2007Q1

REPORT INFORMATION
  Report Type: 
  Country: None (occurrence: None)
  Receive Date: 20070313
  Receipt Date: 20070302
  Transmission Date: 20070707
  Serious: Yes (Death, Hospitalization)
  Sender: FDA-Public Use
  Company Number: BR-NOVOPROD-261309

PATIENT
  Sex: Male
  Weight: 120 kg

DRUGS (10)
  1. NOVOSEVEN [Suspect]
     Indication: TRAUMATIC HAEMORRHAGE
     Dosage: UNK, UNK
     Route: 042
     Dates: start: 20070221, end: 20070221
  2. CEFTRIAXONE [Concomitant]
     Indication: ANTIBIOTIC LEVEL THERAPEUTIC
     Dosage: 3 G, QD
     Route: 042
     Dates: start: 20070223, end: 20070224
  3. ACETAMINOPHEN [Concomitant]
     Indication: PYREXIA
     Dosage: 2400 MG, QD
     Route: 048
     Dates: start: 20070221, end: 20070301
  4. MIDAZOLAM HCL [Concomitant]
     Indication: SEDATION
     Dosage: 420 MG, QD
     Route: 042
     Dates: start: 20070221, end: 20070302
  5. CEFAZOLIN [Concomitant]
     Indication: ANTIBIOTIC PROPHYLAXIS
     Dosage: 1 G, QD
     Route: 042
     Dates: start: 20070221, end: 20070222
  6. DIPIRONA [Concomitant]
     Indication: PYREXIA
     Dosage: 500 MG, QD
     Route: 042
     Dates: start: 20070221, end: 20070302
  7. RANITIDINE [Concomitant]
     Indication: PROPHYLAXIS AGAINST GASTROINTESTINAL ULCER
     Dosage: 50 MG, QD
     Route: 042
     Dates: start: 20070221, end: 20070302
  8. METOCLOPRAMIDE [Concomitant]
     Indication: ANTIEMETIC SUPPORTIVE CARE
     Dosage: 10 MG, QD
     Route: 042
     Dates: start: 20070221, end: 20070302
  9. FENTANYL [Concomitant]
     Indication: ANALGESIC EFFECT
     Dosage: 1 UG, QD
     Route: 042
     Dates: start: 20070221, end: 20070302
  10. NORADRENALINE [Concomitant]
     Indication: HYPOTENSION
     Dosage: 0.05 UG/KG/HRS
     Route: 042
     Dates: start: 20070221, end: 20070302

REACTIONS (2)
  - ACUTE RESPIRATORY DISTRESS SYNDROME [None]
  - MULTI-ORGAN FAILURE [None]
